FAERS Safety Report 6983577-1 (Version None)
Quarter: 2010Q3

REPORT INFORMATION
  Report Type: 
  Country: None (occurrence: None)
  Receive Date: 20100914
  Receipt Date: 20081007
  Transmission Date: 20110219
  Serious: No
  Sender: FDA-Public Use
  Company Number: US-WYE-H06308908

PATIENT
  Age: 29 Year
  Sex: Male

DRUGS (2)
  1. ADVIL LIQUI-GELS [Suspect]
     Indication: BACK PAIN
     Dosage: UNKNOWN AS NEEDED
     Route: 048
     Dates: end: 20080901
  2. ADVIL LIQUI-GELS [Suspect]
     Dosage: 1-2 TABLETS TWICE DAILY TO THREE TIMES A DAY
     Route: 048
     Dates: start: 20080901

REACTIONS (1)
  - COELIAC DISEASE [None]
